FAERS Safety Report 21527814 (Version 2)
Quarter: 2022Q4

REPORT INFORMATION
  Report Type: Spontaneous
  Country: US (occurrence: US)
  Receive Date: 20221031
  Receipt Date: 20221031
  Transmission Date: 20230113
  Serious: Yes (Life-Threatening, Hospitalization, Other)
  Sender: FDA-Public Use
  Company Number: US-PFIZER INC-PV202200084450

PATIENT
  Sex: Male
  Weight: 4.15 kg

DRUGS (2)
  1. HEMABATE [Suspect]
     Active Substance: CARBOPROST TROMETHAMINE
     Dosage: 125 UG
     Route: 030
  2. VITAMIN K [Concomitant]
     Active Substance: PHYTONADIONE
     Dosage: UNK
     Route: 030

REACTIONS (8)
  - Accidental exposure to product by child [Recovered/Resolved]
  - Neonatal tachycardia [Recovered/Resolved]
  - Hyperreflexia [Recovered/Resolved]
  - Hyperthermia [Recovered/Resolved]
  - Neonatal hypoxia [Recovered/Resolved]
  - Infantile apnoea [Recovered/Resolved]
  - Hypothermia neonatal [Recovered/Resolved]
  - Hypotonia neonatal [Recovered/Resolved]
